FAERS Safety Report 4380150-9 (Version None)
Quarter: 2004Q2

REPORT INFORMATION
  Report Type: 
  Country: None (occurrence: None)
  Receive Date: 20040614
  Receipt Date: 20040406
  Transmission Date: 20050107
  Serious: No
  Sender: FDA-Public Use
  Company Number: M04-341-109

PATIENT

DRUGS (1)
  1. VELCADE [Suspect]

REACTIONS (2)
  - ASTHENIA [None]
  - HERPES ZOSTER [None]
